FAERS Safety Report 18796643 (Version 2)
Quarter: 2021Q3

REPORT INFORMATION
  Report Type: Report from Study
  Country: BR (occurrence: BR)
  Receive Date: 20210128
  Receipt Date: 20210714
  Transmission Date: 20211014
  Serious: Yes (Other)
  Sender: FDA-Public Use
  Company Number: NVSC2021BR015112

PATIENT
  Age: 63 Year
  Sex: Female

DRUGS (2)
  1. COSENTYX [Suspect]
     Active Substance: SECUKINUMAB
     Indication: PSORIATIC ARTHROPATHY
     Dosage: UNK UNK, UNKNOWN
     Route: 065
     Dates: start: 20200924
  2. COSENTYX [Suspect]
     Active Substance: SECUKINUMAB
     Dosage: 300 MG, UNKNOWN
     Route: 065
     Dates: start: 20200921

REACTIONS (9)
  - Ageusia [Recovered/Resolved]
  - COVID-19 [Recovered/Resolved]
  - Drug ineffective [Not Recovered/Not Resolved]
  - Psoriatic arthropathy [Not Recovered/Not Resolved]
  - Inflammation [Unknown]
  - Pruritus [Unknown]
  - Anosmia [Recovered/Resolved]
  - Cellulitis [Not Recovered/Not Resolved]
  - Foreign body in gastrointestinal tract [Unknown]

NARRATIVE: CASE EVENT DATE: 202101
